FAERS Safety Report 21207856 (Version 1)
Quarter: 2022Q3

REPORT INFORMATION
  Report Type: Spontaneous
  Country: GB (occurrence: GB)
  Receive Date: 20220812
  Receipt Date: 20220812
  Transmission Date: 20221026
  Serious: Yes (Other)
  Sender: FDA-Public Use
  Company Number: None

PATIENT
  Age: 64 Year
  Sex: Female
  Weight: 58.2 kg

DRUGS (9)
  1. ATORVASTATIN [Suspect]
     Active Substance: ATORVASTATIN
     Indication: Product used for unknown indication
     Dosage: STRENGTH ; 80 MG
     Route: 048
  2. AMLODIPINE [Concomitant]
     Active Substance: AMLODIPINE BESYLATE
     Indication: Product used for unknown indication
     Dosage: 5 MILLIGRAM DAILY; UNIT DOSE AND UNIT STRENGTH : 5 MG, FREQUENCY ; 1, FREQUENCY TIME : 1 DAYS
     Dates: start: 20220530
  3. AMLODIPINE [Concomitant]
     Active Substance: AMLODIPINE BESYLATE
     Dosage: 1 DOSAGE FORMS DAILY; UNIT DOSE : 1 DOSAGE FORMS, FREQUENCY ; 1, FREQUENCY TIME : 1 DAYS, UNIT STREN
     Dates: start: 20220614
  4. AMLODIPINE [Concomitant]
     Active Substance: AMLODIPINE BESYLATE
     Dosage: 1 DOSAGE FORMS DAILY; UNIT DOSE : 1 DOSAGE FORMS, FREQUENCY ; 1, FREQUENCY TIME : 1 DAYS, UNIT STREN
     Dates: start: 20220711
  5. COCODAMOL [Concomitant]
     Active Substance: ACETAMINOPHEN\CODEINE PHOSPHATE
     Indication: Product used for unknown indication
     Dosage: TAKE 1 OR 2 TABLETS  6 HOURLY AS REQUIRED UPTO A MAXIMUM  OF 8 TABLETS IN 24 HOUR, STRENGTH : 15MG/5
     Dates: start: 20220713
  6. COCODAMOL [Concomitant]
     Active Substance: ACETAMINOPHEN\CODEINE PHOSPHATE
     Dosage: TAKE 1 OR 2 TABLETS  6 HOURLY AS REQUIRED UPTO A MAXIMUM   8 TABLETS IN 24 HOUR, STRENGTH : 15MG/500
     Dates: start: 20220704
  7. NITROGLYCERIN [Concomitant]
     Active Substance: NITROGLYCERIN
     Indication: Product used for unknown indication
     Dosage: 1-2 SPRAY UNDER THE TONGUE WHEN REQUIRED AS ADVISED ONE RX WAS EXPRIRING IN JUNE 2022), STRENGTH : 4
     Route: 060
     Dates: start: 20220530
  8. NITROGLYCERIN [Concomitant]
     Active Substance: NITROGLYCERIN
     Dosage: 1-2 SPRAY UNDER THE TONGUE WHEN REQUIRED AS ADVISED, STRENGTH : 400 MICROGRAM
     Route: 060
     Dates: start: 20220518
  9. NAPROXEN [Concomitant]
     Active Substance: NAPROXEN
     Indication: Product used for unknown indication
     Dosage: TAKE 1 OR 2,  FREQUENCY ; 2, FREQUENCY TIME : 1 DAYS,STRENGTH : 250 MG
     Dates: start: 20220704

REACTIONS (1)
  - Liver disorder [Recovered/Resolved]

NARRATIVE: CASE EVENT DATE: 20220421
